FAERS Safety Report 8240379-6 (Version None)
Quarter: 2012Q1

REPORT INFORMATION
  Report Type: 
  Country: None (occurrence: None)
  Receive Date: 20120328
  Receipt Date: 20120326
  Transmission Date: 20120608
  Serious: Yes (Other)
  Sender: FDA-Public Use
  Company Number: US-PFIZER INC-2012076299

PATIENT
  Sex: Female
  Weight: 45 kg

DRUGS (2)
  1. CYTOTEC [Suspect]
     Indication: ABORTION SPONTANEOUS
     Dosage: 600 UG, SINGLE
     Route: 048
     Dates: start: 20120315, end: 20120315
  2. CYTOTEC [Suspect]
     Indication: OFF LABEL USE

REACTIONS (5)
  - DYSPEPSIA [None]
  - APHAGIA [None]
  - NAUSEA [None]
  - INSOMNIA [None]
  - CHEST PAIN [None]
